FAERS Safety Report 23437300 (Version 3)
Quarter: 2024Q2

REPORT INFORMATION
  Report Type: Report from Study
  Country: DE (occurrence: DE)
  Receive Date: 20240124
  Receipt Date: 20240410
  Transmission Date: 20240716
  Serious: Yes (Hospitalization)
  Sender: FDA-Public Use
  Company Number: DE-CLINIGEN-DE-CLI-2024-008916

PATIENT

DRUGS (22)
  1. PROLEUKIN [Suspect]
     Active Substance: ALDESLEUKIN
     Indication: Malignant melanoma stage III
     Dosage: UNK, BID
     Dates: start: 20240112, end: 20240112
  2. PROLEUKIN [Suspect]
     Active Substance: ALDESLEUKIN
     Dosage: UNK, BID
     Dates: start: 20240113, end: 20240113
  3. PROLEUKIN [Suspect]
     Active Substance: ALDESLEUKIN
     Dosage: UNK, QD
     Dates: start: 20240114, end: 20240114
  4. PROLEUKIN [Suspect]
     Active Substance: ALDESLEUKIN
     Dosage: UNK, QD
     Dates: start: 20240115, end: 20240115
  5. LYMPHOCYTES [Suspect]
     Active Substance: LYMPHOCYTES
     Indication: Malignant melanoma stage III
     Dosage: 100 UNK, TID
     Dates: start: 20240111, end: 20240111
  6. CYCLOPHOSPHAMIDE [Suspect]
     Active Substance: CYCLOPHOSPHAMIDE
     Indication: Malignant melanoma stage III
     Dosage: 6900 UNK
     Dates: start: 20240104, end: 20240105
  7. FLUDARABINE [Suspect]
     Active Substance: FLUDARABINE PHOSPHATE
     Indication: Malignant melanoma stage III
     Dosage: 61 UNK
     Dates: start: 20240106, end: 20240110
  8. PEMBROLIZUMAB [Suspect]
     Active Substance: PEMBROLIZUMAB
     Indication: Malignant melanoma stage III
     Dosage: 400 UNK
     Dates: start: 20231129, end: 20231129
  9. DEXKETOPROFEN [Concomitant]
     Active Substance: DEXKETOPROFEN
     Indication: Back pain
     Dosage: 25 MILLIGRAM, BID
     Route: 048
     Dates: start: 201901
  10. HYDROCHLOROTHIAZIDE [Concomitant]
     Active Substance: HYDROCHLOROTHIAZIDE
     Indication: Hypertension
     Dosage: 12.5 MILLIGRAM, QD
     Route: 048
     Dates: start: 201706
  11. ATORVASTATIN [Concomitant]
     Active Substance: ATORVASTATIN
     Indication: Hypercholesterolaemia
     Dosage: 20 MILLIGRAM, QD
     Route: 048
     Dates: start: 202210
  12. ALLOPURINOL [Concomitant]
     Active Substance: ALLOPURINOL
     Indication: Hyperuricaemia
     Dosage: 100 MILLIGRAM, QD
     Route: 048
     Dates: start: 201904
  13. CANNABIS SATIVA FLOWERING TOP [Concomitant]
     Active Substance: CANNABIS SATIVA FLOWERING TOP
     Indication: Back pain
     Dosage: 1 APPLICATION, INHALAION
     Dates: start: 2013, end: 2023
  14. INNOHEP [Concomitant]
     Active Substance: TINZAPARIN SODIUM
     Indication: Prophylaxis
     Dosage: 4500 INTERNATIONAL UNIT, QD
     Route: 058
     Dates: start: 20231128
  15. ONDANSETRON [Concomitant]
     Active Substance: ONDANSETRON
     Indication: Nausea
     Dosage: 2 MG, PRN
     Route: 048
     Dates: start: 20231206
  16. ACYCLOVIR [Concomitant]
     Active Substance: ACYCLOVIR
     Indication: Prophylaxis
     Dosage: 400 MILLIGRAM, QD
     Route: 048
     Dates: start: 20240104
  17. SULFAMETHOXAZOLE\TRIMETHOPRIM [Concomitant]
     Active Substance: SULFAMETHOXAZOLE\TRIMETHOPRIM
     Indication: Prophylaxis
     Dosage: 800 MILLIGRAM, QD
     Route: 048
     Dates: start: 20240104
  18. BUTYLSCOPOLAMINE BROMIDE [Concomitant]
     Active Substance: BUTYLSCOPOLAMINE BROMIDE
     Indication: Nausea
     Dosage: 20 MILLIGRAM, PRN
     Route: 042
     Dates: start: 20240106
  19. TAMSULOSIN [Concomitant]
     Active Substance: TAMSULOSIN
     Indication: Benign prostatic hyperplasia
     Dosage: 0.4 MILLIGRAM, QD
     Route: 048
     Dates: start: 20240106
  20. PANTOPRAZOLE [Concomitant]
     Active Substance: PANTOPRAZOLE
     Indication: Prophylaxis
     Dosage: 40 MILLIGRAM, QD
     Route: 048
     Dates: start: 20240107
  21. METAMIZOL [Concomitant]
     Active Substance: METAMIZOLE SODIUM
     Indication: Abdominal pain
     Dosage: 2500 MILLIGRAM, CONTINUOUS
     Route: 042
     Dates: start: 20240108
  22. JONOSTERIL [CALCIUM CHLORIDE DIHYDRATE;POTASSIUM CHLORIDE;SODIUM LACTA [Concomitant]
     Indication: Prophylaxis
     Dosage: 1000 MILLILITER, CONTINUOUS
     Route: 042
     Dates: start: 20240108

REACTIONS (1)
  - Pancytopenia [Recovering/Resolving]

NARRATIVE: CASE EVENT DATE: 20240116
